FAERS Safety Report 23624944 (Version 1)
Quarter: 2024Q1

REPORT INFORMATION
  Report Type: Spontaneous
  Country: CH (occurrence: CH)
  Receive Date: 20240313
  Receipt Date: 20240313
  Transmission Date: 20240409
  Serious: Yes (Life-Threatening, Hospitalization)
  Sender: FDA-Public Use
  Company Number: None

PATIENT
  Age: 61 Year
  Sex: Male

DRUGS (15)
  1. CLONAZEPAM [Suspect]
     Active Substance: CLONAZEPAM
     Dosage: IN TOTAL, 50 CPR
     Dates: start: 20230917, end: 20230917
  2. CLONAZEPAM [Suspect]
     Active Substance: CLONAZEPAM
     Dosage: 2X/D
  3. METFORMIN HYDROCHLORIDE [Suspect]
     Active Substance: METFORMIN HYDROCHLORIDE
     Dosage: IN TOTAL
     Dates: start: 20230917, end: 20230917
  4. METFORMIN HYDROCHLORIDE [Suspect]
     Active Substance: METFORMIN HYDROCHLORIDE
     Dosage: 2X/D
  5. DAFALGAN [Suspect]
     Active Substance: ACETAMINOPHEN
     Dosage: IN TOTAL
     Dates: start: 20230917, end: 20230917
  6. DAFALGAN [Suspect]
     Active Substance: ACETAMINOPHEN
     Dosage: 20 CPR
  7. TOLPERISONE HYDROCHLORIDE [Suspect]
     Active Substance: TOLPERISONE HYDROCHLORIDE
     Dates: start: 20230917, end: 20230917
  8. TOLPERISONE HYDROCHLORIDE [Suspect]
     Active Substance: TOLPERISONE HYDROCHLORIDE
     Dosage: 30 CPR
  9. RYBELSUS [Concomitant]
     Active Substance: SEMAGLUTIDE
     Dosage: 10 CPR
     Dates: start: 20230917, end: 20230917
  10. RYBELSUS [Concomitant]
     Active Substance: SEMAGLUTIDE
     Dosage: DAILY DOSE: 14 MILLIGRAM
  11. Sirdalud ret [Concomitant]
     Dosage: 2X/D
  12. PRAMIPEXOLE [Concomitant]
     Active Substance: PRAMIPEXOLE\PRAMIPEXOLE DIHYDROCHLORIDE
     Dosage: DAILY DOSE: 0.5 MILLIGRAM
  13. EZETIMIBE [Concomitant]
     Active Substance: EZETIMIBE
     Dosage: DAILY DOSE: 10 MILLIGRAM
  14. CHOLECALCIFEROL [Concomitant]
     Active Substance: CHOLECALCIFEROL
  15. CRESTATIN [Concomitant]
     Dosage: DAILY DOSE: 5 MILLIGRAM

REACTIONS (10)
  - Intentional overdose [Recovered/Resolved]
  - Vomiting [Recovered/Resolved]
  - Altered state of consciousness [Recovered/Resolved]
  - Hypothermia [Recovered/Resolved]
  - Acute respiratory distress syndrome [Recovered/Resolved]
  - Acute hepatic failure [Recovered/Resolved]
  - Acute kidney injury [Recovered/Resolved]
  - Haemodynamic instability [Recovered/Resolved]
  - Lactic acidosis [Recovered/Resolved]
  - Hypoglycaemia [Recovered/Resolved]

NARRATIVE: CASE EVENT DATE: 20230917
